FAERS Safety Report 5751140-6 (Version None)
Quarter: 2008Q2

REPORT INFORMATION
  Report Type: 
  Country: None (occurrence: None)
  Receive Date: 20080522
  Receipt Date: 20070725
  Transmission Date: 20081010
  Serious: Yes (Other)
  Sender: FDA-Public Use
  Company Number: 2007BH004882

PATIENT
  Age: 61 Year
  Sex: Male

DRUGS (18)
  1. DOPAMINE HCL IN 5% DEXTROSE [Suspect]
     Indication: CARDIAC OPERATION
     Dosage: ;CONTINUOUS;IV
     Route: 042
     Dates: start: 20070406
  2. EPINEPHRINE [Suspect]
     Indication: CARDIAC OPERATION
     Dosage: 5.4 ML/HOUR;CONTINUOUS;IV
     Route: 042
     Dates: start: 20070406
  3. NOREPINEPHRINE [Suspect]
     Indication: CARDIAC OPERATION
     Dosage: ;CONTINUOUS;IV
     Route: 042
     Dates: start: 20070406
  4. HETASTARCH 6% IN 0.9% SODIUM CHLORIDE IN PLASTIC CONTAINER [Concomitant]
  5. NITROGLYCERIN [Concomitant]
  6. SODIUM NITROPRUSSIDE [Concomitant]
  7. METOPROLOL [Concomitant]
  8. ONDANSETRON [Concomitant]
  9. PROCHLORPERAZINE [Concomitant]
  10. MORPHINE [Concomitant]
  11. PANTOPRAZOLE SODIUM [Concomitant]
  12. PROPOFOL [Concomitant]
  13. PHENYLEPHRINE [Concomitant]
  14. EPHEDRINE SUL CAP [Concomitant]
  15. CEFUROXIME [Concomitant]
  16. AMINOCAPROIC ACID [Concomitant]
  17. HEPARIN [Concomitant]
  18. PLASMA-LYTE 56 AND DEXTROSE 5% IN PLASTIC CONTAINER [Concomitant]

REACTIONS (1)
  - BLOOD PRESSURE DECREASED [None]
